FAERS Safety Report 24795123 (Version 1)
Quarter: 2024Q4

REPORT INFORMATION
  Report Type: Spontaneous
  Country: FR (occurrence: FR)
  Receive Date: 20241231
  Receipt Date: 20241231
  Transmission Date: 20250115
  Serious: Yes (Other)
  Sender: MYLAN
  Company Number: None

PATIENT
  Age: 80 Year
  Sex: Female
  Weight: 65 kg

DRUGS (3)
  1. METHOTREXATE [Suspect]
     Active Substance: METHOTREXATE
     Indication: Pemphigoid
     Dosage: 10 MILLIGRAM,QW,(10MG/WEEK)
     Route: 058
     Dates: start: 202407, end: 20241118
  2. DOXYCYCLINE [Interacting]
     Active Substance: DOXYCYCLINE
     Indication: Pemphigoid
     Dosage: 200 MILLIGRAM, QD,(200 MG/DAY)
     Route: 048
     Dates: start: 202403, end: 20241118
  3. DAPSONE\FERROUS OXALATE [Interacting]
     Active Substance: DAPSONE\FERROUS OXALATE
     Indication: Pemphigoid
     Dosage: 50 MILLIGRAM, QD,(50MG/DAY,SCORED TABLET)
     Route: 048
     Dates: start: 202403, end: 20241118

REACTIONS (1)
  - Pancytopenia [Unknown]

NARRATIVE: CASE EVENT DATE: 20241118
